FAERS Safety Report 16025547 (Version 1)
Quarter: 2019Q1

REPORT INFORMATION
  Report Type: Report from Study
  Country: None (occurrence: AR)
  Receive Date: 20190302
  Receipt Date: 20190302
  Transmission Date: 20190418
  Serious: Yes (Hospitalization)
  Sender: FDA-Public Use
  Company Number: AR-ABBVIE-19K-007-2686653-00

PATIENT
  Sex: Male
  Weight: 4.32 kg

DRUGS (1)
  1. HUMIRA [Suspect]
     Active Substance: ADALIMUMAB
     Indication: MATERNAL EXPOSURE TIMING UNSPECIFIED
     Route: 064

REACTIONS (4)
  - Crying [Unknown]
  - Foetal exposure during pregnancy [Unknown]
  - Exaggerated startle response [Unknown]
  - Irritability [Unknown]

NARRATIVE: CASE EVENT DATE: 201902
